FAERS Safety Report 9939898 (Version 1)
Quarter: 2014Q1

REPORT INFORMATION
  Report Type: Spontaneous
  Country: US (occurrence: US)
  Receive Date: 20140303
  Receipt Date: 20140303
  Transmission Date: 20141002
  Serious: No
  Sender: FDA-Public Use
  Company Number: US-ABBVIE-13P-163-1032426-00

PATIENT
  Sex: Female
  Weight: 54.48 kg

DRUGS (2)
  1. HUMIRA [Suspect]
     Indication: PSORIATIC ARTHROPATHY
     Dates: start: 201201, end: 201211
  2. HUMIRA [Suspect]
     Dates: start: 201211

REACTIONS (4)
  - Off label use [Not Recovered/Not Resolved]
  - Joint swelling [Recovered/Resolved with Sequelae]
  - Back pain [Recovering/Resolving]
  - Localised oedema [Recovering/Resolving]
